FAERS Safety Report 12318174 (Version 2)
Quarter: 2016Q2

REPORT INFORMATION
  Report Type: Report from Study
  Country: CA (occurrence: CA)
  Receive Date: 20160429
  Receipt Date: 20160606
  Transmission Date: 20160815
  Serious: Yes (Other)
  Sender: FDA-Public Use
  Company Number: PHHY2015CA064478

PATIENT
  Age: 89 Year
  Sex: Male

DRUGS (1)
  1. EXJADE [Suspect]
     Active Substance: DEFERASIROX
     Indication: MYELODYSPLASTIC SYNDROME
     Dosage: 2000 MG, QD
     Route: 048
     Dates: start: 20150205

REACTIONS (6)
  - Productive cough [Unknown]
  - Aphthous ulcer [Unknown]
  - Pneumonia [Unknown]
  - Malaise [Unknown]
  - Dry mouth [Unknown]
  - Lip dry [Unknown]

NARRATIVE: CASE EVENT DATE: 20160418
